FAERS Safety Report 5742203-X (Version None)
Quarter: 2008Q2

REPORT INFORMATION
  Report Type: 
  Country: None (occurrence: None)
  Receive Date: 20080514
  Receipt Date: 20080514
  Transmission Date: 20081010
  Serious: Yes (Life-Threatening, Hospitalization)
  Sender: FDA-Public Use
  Company Number: None

PATIENT
  Age: 67 Year
  Sex: Male
  Weight: 65.7716 kg

DRUGS (1)
  1. DIGITEK  0.125MG [Suspect]
     Dosage: TAKE ONE TABLET BY MOUTH ONE TIME DAILY PO
     Route: 048
     Dates: start: 20070503, end: 20080512

REACTIONS (4)
  - CHEST PAIN [None]
  - CONVULSION [None]
  - HYPOTENSION [None]
  - PHARMACEUTICAL PRODUCT COMPLAINT [None]
